FAERS Safety Report 5911435-X (Version None)
Quarter: 2008Q4

REPORT INFORMATION
  Report Type: 
  Country: None (occurrence: None)
  Receive Date: 20081007
  Receipt Date: 20080925
  Transmission Date: 20090506
  Serious: Yes (Other)
  Sender: FDA-Public Use
  Company Number: US-PFIZER INC-2008081598

PATIENT
  Age: 57 Year
  Sex: Female

DRUGS (4)
  1. DOXORUBICIN HCL [Suspect]
     Indication: BREAST CANCER
  2. CYCLOPHOSPHAMIDE [Suspect]
     Indication: BREAST CANCER
  3. TAXOTERE [Suspect]
     Indication: BREAST CANCER
     Dates: start: 20080710
  4. DECADRON [Concomitant]

REACTIONS (4)
  - ALVEOLITIS ALLERGIC [None]
  - COUGH [None]
  - DYSPNOEA [None]
  - GASTROINTESTINAL TOXICITY [None]
